FAERS Safety Report 6019574-2 (Version None)
Quarter: 2008Q4

REPORT INFORMATION
  Report Type: 
  Country: None (occurrence: None)
  Receive Date: 20081224
  Receipt Date: 20081215
  Transmission Date: 20090506
  Serious: Yes (Hospitalization)
  Sender: FDA-Public Use
  Company Number: PHHY2008GB29487

PATIENT
  Sex: Male

DRUGS (1)
  1. CLOZARIL [Suspect]
     Indication: SCHIZOPHRENIA
     Dosage: UNK
     Dates: start: 20080507

REACTIONS (4)
  - GASTROINTESTINAL NEOPLASM [None]
  - PLATELET COUNT INCREASED [None]
  - TUMOUR EXCISION [None]
  - WHITE BLOOD CELL COUNT INCREASED [None]
